FAERS Safety Report 24289358 (Version 1)
Quarter: 2024Q3

REPORT INFORMATION
  Report Type: Spontaneous
  Country: US (occurrence: US)
  Receive Date: 20240906
  Receipt Date: 20240906
  Transmission Date: 20241016
  Serious: Yes (Other)
  Sender: HIKMA
  Company Number: US-HIKMA PHARMACEUTICALS USA INC.-US-H14001-24-08156

PATIENT
  Age: 52 Year
  Sex: Male

DRUGS (2)
  1. NICARDIPINE [Suspect]
     Active Substance: NICARDIPINE
     Dosage: 12.5 MILLIGRAM/H
     Route: 042
  2. NICARDIPINE [Suspect]
     Active Substance: NICARDIPINE
     Indication: Blood pressure increased
     Dosage: 2.5 MILLIGRAM/H, EVERY 5-15 MIN
     Route: 042

REACTIONS (1)
  - Anaphylactoid reaction [Recovered/Resolved]
